FAERS Safety Report 7723646-1 (Version None)
Quarter: 2011Q3

REPORT INFORMATION
  Report Type: 
  Country: None (occurrence: None)
  Receive Date: 20110826
  Receipt Date: 20110812
  Transmission Date: 20111222
  Serious: Yes (Other)
  Sender: FDA-Public Use
  Company Number: US-1187185

PATIENT
  Age: 76 Year
  Sex: Female
  Weight: 79.3795 kg

DRUGS (6)
  1. HYDROCHLOROTHIAZIDE [Concomitant]
  2. AMLODIPINE [Concomitant]
  3. LUMIGAN [Concomitant]
  4. AZOPT [Suspect]
     Indication: GLAUCOMA
     Dosage: (1 GTT TID OU OPHTHALMIC), (1 GTT BID OU OPHTHALMIC), (1 GTT QD OU OPHTHALMIC)
     Route: 047
     Dates: start: 20101119
  5. MYOFLEX [Concomitant]
  6. LAXATIVES [Concomitant]

REACTIONS (7)
  - BRONCHITIS [None]
  - EAR PAIN [None]
  - VISION BLURRED [None]
  - HYPOACUSIS [None]
  - THERAPEUTIC PRODUCT INEFFECTIVE [None]
  - CERUMEN REMOVAL [None]
  - EAR CONGESTION [None]
